FAERS Safety Report 4694961-3 (Version None)
Quarter: 2005Q2

REPORT INFORMATION
  Report Type: 
  Country: None (occurrence: None)
  Receive Date: 20050617
  Receipt Date: 20050606
  Transmission Date: 20051028
  Serious: Yes (Other)
  Sender: FDA-Public Use
  Company Number: 215063

PATIENT
  Age: 52 Year
  Sex: Male
  Weight: 48.5 kg

DRUGS (9)
  1. RITUXAN [Suspect]
     Indication: NON-HODGKIN'S LYMPHOMA
     Dosage: 570 MG, 1/WEEK, INTRAVENOUS
     Route: 042
     Dates: start: 20011126, end: 20011217
  2. DOXORUBICIN HYDROCHLORIDE [Concomitant]
  3. ATARAX [Concomitant]
  4. ACETAMINOPHEN [Concomitant]
  5. PRIMAXIN [Concomitant]
  6. CARBENIN (PANIPENEM, BETAMIPRON) [Concomitant]
  7. AMIKACIN SULFATE [Concomitant]
  8. MORPHINE [Concomitant]
  9. DIFLUCAN [Concomitant]

REACTIONS (17)
  - ABDOMINAL NEOPLASM [None]
  - BLOOD PRESSURE INCREASED [None]
  - BLOOD UREA INCREASED [None]
  - CHILLS [None]
  - HAEMOGLOBIN DECREASED [None]
  - HYDRONEPHROSIS [None]
  - HYPERCALCAEMIA [None]
  - HYPERURICAEMIA [None]
  - NEOPLASM PROGRESSION [None]
  - NEUTROPENIA [None]
  - PLATELET COUNT INCREASED [None]
  - PYREXIA [None]
  - RENAL FAILURE [None]
  - RENAL IMPAIRMENT [None]
  - URETERIC STENOSIS [None]
  - WEIGHT INCREASED [None]
  - WHITE BLOOD CELL COUNT DECREASED [None]
